FAERS Safety Report 26123308 (Version 1)
Quarter: 2025Q4

REPORT INFORMATION
  Report Type: Report from Study
  Country: CA (occurrence: CA)
  Receive Date: 20251204
  Receipt Date: 20251204
  Transmission Date: 20260118
  Serious: Yes (Other)
  Sender: JOHNSON AND JOHNSON
  Company Number: CA-JNJFOC-20240713988

PATIENT
  Age: 30 Year
  Sex: Female
  Weight: 68 kg

DRUGS (4)
  1. REMICADE [Suspect]
     Active Substance: INFLIXIMAB
     Indication: Colitis
     Dosage: 10 MG/KG
     Route: 041
     Dates: start: 20240628
  2. REMICADE [Suspect]
     Active Substance: INFLIXIMAB
     Route: 041
     Dates: start: 20240712
  3. SULFAMETHOXAZOLE\TRIMETHOPRIM [Concomitant]
     Active Substance: SULFAMETHOXAZOLE\TRIMETHOPRIM
     Indication: Product used for unknown indication
     Dosage: MONDAY, WEDNESDAY, AND FRIDAY UNTIL PATIENT^S PREDNISONE DOSE IS TAPERED DOWN
     Route: 065
  4. PREDNISOLONE [Concomitant]
     Active Substance: PREDNISOLONE
     Indication: Product used for unknown indication
     Dosage: INITIATED PREDNISONE DOSE AT 60MG AND IS TO TAPER DOWN 5MG Q 5 DAYS, MOST RECENT?DOSE CHANGE WAS DEC
     Route: 065

REACTIONS (4)
  - COVID-19 [Recovered/Resolved]
  - Pneumonia [Recovered/Resolved]
  - Off label use [Unknown]
  - Product dose omission issue [Unknown]

NARRATIVE: CASE EVENT DATE: 20240628
